FAERS Safety Report 4856045-0 (Version None)
Quarter: 2005Q4

REPORT INFORMATION
  Report Type: 
  Country: None (occurrence: None)
  Receive Date: 20051216
  Receipt Date: 20050523
  Transmission Date: 20060501
  Serious: Yes (Death)
  Sender: FDA-Public Use
  Company Number: SA-NOVOPROD-244494

PATIENT
  Age: 10 Year
  Sex: Female
  Weight: 25 kg

DRUGS (5)
  1. NORDITROPIN [Suspect]
     Indication: HYPOPITUITARISM
     Dosage: 4 IU, QD VIAL
     Dates: start: 19940903, end: 20050315
  2. NORDITROPIN [Suspect]
     Dosage: 6 IU, QD VIAL
     Dates: start: 20050315, end: 20050420
  3. THYROXIN [Concomitant]
     Dosage: 75 MCG QD
     Dates: start: 19940903, end: 20050420
  4. DDAVP [Concomitant]
     Dosage: .1 MG, QD
     Dates: start: 19940903, end: 20050420
  5. HYDROCORTISONE [Concomitant]
     Dosage: 5 MG, BID
     Dates: start: 19940903, end: 20050420

REACTIONS (4)
  - DEPRESSED LEVEL OF CONSCIOUSNESS [None]
  - PHARYNGOLARYNGEAL PAIN [None]
  - SCOLIOSIS [None]
  - SUDDEN DEATH [None]
